FAERS Safety Report 8457889-9 (Version None)
Quarter: 2012Q2

REPORT INFORMATION
  Report Type: 
  Country: None (occurrence: None)
  Receive Date: 20120618
  Receipt Date: 20120618
  Transmission Date: 20120825
  Serious: Yes (Other)
  Sender: FDA-Public Use
  Company Number: None

PATIENT
  Age: 51 Year
  Sex: Female
  Weight: 53.5244 kg

DRUGS (4)
  1. PEROXIDE (HYDROGEN PEROXIDE) UNSPECIFIED [Concomitant]
  2. LISTERINE WHITENING RINSE VIBRANT WHITE (ORAL CARE PRODUCTS) ORAL RINS [Suspect]
     Indication: DENTAL CARE
     Dosage: 2 IN 1 DAY, ORAL
     Route: 048
  3. UNKNOWN MEDICATION (ALL OTHER THERAPEUTIC PRODUCTS) UNSPECIFIED [Concomitant]
  4. TOOTHPASTE (STOMATOLOGICALS, MOUTH PREPARATIONS) PASTE [Concomitant]

REACTIONS (6)
  - DRY MOUTH [None]
  - PRODUCT QUALITY ISSUE [None]
  - GLOSSITIS [None]
  - AGEUSIA [None]
  - DYSGEUSIA [None]
  - LIP DRY [None]
